FAERS Safety Report 8772239 (Version 1)
Quarter: 2012Q4

REPORT INFORMATION
  Report Type: 
  Country: US (occurrence: US)
  Receive Date: 20120905
  Receipt Date: 20120905
  Transmission Date: 20130627
  Serious: Yes (Hospitalization)
  Sender: FDA-Public Use
  Company Number: US-ASTRAZENECA-2012SE64655

PATIENT
  Age: 72 Year
  Sex: Female
  Weight: 82.1 kg

DRUGS (12)
  1. CRESTOR [Suspect]
     Indication: DYSLIPIDAEMIA
     Route: 048
  2. NORVASC [Suspect]
     Indication: HYPERTENSION
     Route: 065
  3. LOPID [Suspect]
     Indication: BLOOD TRIGLYCERIDES INCREASED
     Route: 065
  4. ATENOLOL [Concomitant]
     Indication: HYPERTENSION
     Route: 048
  5. NOVOLIN R [Concomitant]
     Indication: DIABETES MELLITUS
  6. TERAZOSIN [Concomitant]
     Indication: HYPERTENSION
  7. COUMADIN [Concomitant]
     Dosage: 2.5 MG DAILY MONDAY TO FRIDAY
  8. COUMADIN [Concomitant]
     Dosage: 5 MG DAILY REST OF THE DAYS
  9. VITAMIN D [Concomitant]
  10. VITAMIN B12 [Concomitant]
  11. PLETAL [Concomitant]
     Indication: PERIPHERAL VASCULAR DISORDER
  12. ASPIRIN [Concomitant]
     Indication: PERIPHERAL VASCULAR DISORDER

REACTIONS (14)
  - Renal failure [Not Recovered/Not Resolved]
  - Red blood cell count decreased [Not Recovered/Not Resolved]
  - Haematocrit decreased [Not Recovered/Not Resolved]
  - Lymphocyte count decreased [Not Recovered/Not Resolved]
  - Neutrophil count increased [Not Recovered/Not Resolved]
  - Red cell distribution width increased [Not Recovered/Not Resolved]
  - Blood cholesterol increased [Not Recovered/Not Resolved]
  - High density lipoprotein decreased [Not Recovered/Not Resolved]
  - Blood triglycerides increased [Not Recovered/Not Resolved]
  - Blood creatinine increased [Not Recovered/Not Resolved]
  - Blood urea increased [Not Recovered/Not Resolved]
  - Blood calcium decreased [Not Recovered/Not Resolved]
  - PCO2 decreased [Not Recovered/Not Resolved]
  - Muscular weakness [Unknown]
